FAERS Safety Report 4315861-4 (Version None)
Quarter: 2004Q1

REPORT INFORMATION
  Report Type: 
  Country: None (occurrence: None)
  Receive Date: 20040310
  Receipt Date: 20040227
  Transmission Date: 20041129
  Serious: Yes (Hospitalization)
  Sender: FDA-Public Use
  Company Number: RENA-10915

PATIENT
  Age: 56 Year
  Sex: Male

DRUGS (1)
  1. RENAGEL [Suspect]
     Indication: HYPERPHOSPHATAEMIA
     Dosage: 7.2 G DAILY PO
     Route: 048
     Dates: start: 20030201

REACTIONS (2)
  - RASH [None]
  - SKIN NODULE [None]
